FAERS Safety Report 25697604 (Version 1)
Quarter: 2025Q3

REPORT INFORMATION
  Report Type: Report from Study
  Country: US (occurrence: US)
  Receive Date: 20250818
  Receipt Date: 20250818
  Transmission Date: 20251020
  Serious: Yes (Death, Other)
  Sender: ABBVIE
  Company Number: US-ABBVIE-6418843

PATIENT
  Age: 76 Year
  Sex: Female

DRUGS (1)
  1. CREON [Suspect]
     Active Substance: PANCRELIPASE AMYLASE\PANCRELIPASE LIPASE\PANCRELIPASE PROTEASE
     Indication: Product used for unknown indication
     Route: 048
     Dates: start: 20250610, end: 20250725

REACTIONS (4)
  - Myocardial infarction [Fatal]
  - Bile duct cancer [Unknown]
  - Hepatic cancer [Unknown]
  - Transient ischaemic attack [Fatal]

NARRATIVE: CASE EVENT DATE: 20250101
